FAERS Safety Report 13577278 (Version 3)
Quarter: 2017Q4

REPORT INFORMATION
  Report Type: Spontaneous
  Country: JP (occurrence: JP)
  Receive Date: 20170524
  Receipt Date: 20171012
  Transmission Date: 20180320
  Serious: Yes (Death)
  Sender: FDA-Public Use
  Company Number: JP-SA-2017SA092431

PATIENT
  Age: 58 Year
  Sex: Male
  Weight: 80 kg

DRUGS (8)
  1. ELPLAT [Suspect]
     Active Substance: OXALIPLATIN
     Indication: GASTRIC CANCER
     Dosage: I.V. INFUSION SOLUTION (OXALIPLATIN) INJECTION
     Route: 041
     Dates: start: 20170215, end: 20170215
  2. ELPLAT [Suspect]
     Active Substance: OXALIPLATIN
     Indication: GASTRIC CANCER
     Dosage: I.V. INFUSION SOLUTION (OXALIPLATIN) INJECTION
     Route: 041
     Dates: start: 20170308, end: 20170308
  3. TS-1 [Suspect]
     Active Substance: GIMERACIL\OTERACIL\TEGAFUR
     Indication: GASTRIC CANCER
     Route: 048
     Dates: start: 20170308
  4. ELPLAT [Suspect]
     Active Substance: OXALIPLATIN
     Indication: GASTRIC CANCER
     Dosage: I.V. INFUSION SOLUTION (OXALIPLATIN) INJECTION
     Route: 041
     Dates: start: 20170125, end: 20170125
  5. TS-1 [Suspect]
     Active Substance: GIMERACIL\OTERACIL\TEGAFUR
     Indication: GASTRIC CANCER
     Route: 048
     Dates: start: 20170329
  6. TS-1 [Suspect]
     Active Substance: GIMERACIL\OTERACIL\TEGAFUR
     Indication: GASTRIC CANCER
     Route: 048
     Dates: start: 20170125
  7. TS-1 [Suspect]
     Active Substance: GIMERACIL\OTERACIL\TEGAFUR
     Indication: GASTRIC CANCER
     Route: 048
     Dates: start: 20170215
  8. ELPLAT [Suspect]
     Active Substance: OXALIPLATIN
     Indication: GASTRIC CANCER
     Dosage: I.V. INFUSION SOLUTION (OXALIPLATIN) INJECTION
     Route: 041
     Dates: start: 20170329, end: 20170329

REACTIONS (3)
  - Disseminated intravascular coagulation [Fatal]
  - Platelet count decreased [Unknown]
  - Interstitial lung disease [Fatal]

NARRATIVE: CASE EVENT DATE: 20170418
